FAERS Safety Report 4998627-1 (Version None)
Quarter: 2006Q2

REPORT INFORMATION
  Report Type: 
  Country: None (occurrence: None)
  Receive Date: 20060508
  Receipt Date: 20060502
  Transmission Date: 20061013
  Serious: Yes (Other)
  Sender: FDA-Public Use
  Company Number: 2006EN000115

PATIENT
  Sex: Female

DRUGS (1)
  1. ABELCET [Suspect]

REACTIONS (2)
  - CYANOSIS [None]
  - HEART RATE INCREASED [None]
